FAERS Safety Report 10075465 (Version 1)
Quarter: 2014Q2

REPORT INFORMATION
  Report Type: Spontaneous
  Country: US (occurrence: None)
  Receive Date: 20140411
  Receipt Date: 20140411
  Transmission Date: 20141212
  Serious: Yes (Hospitalization)
  Sender: FDA-Public Use
  Company Number: None

PATIENT
  Age: 73 Year
  Sex: Female
  Weight: 92.08 kg

DRUGS (13)
  1. DECITABINE [Suspect]
     Indication: ACUTE MYELOID LEUKAEMIA
     Dosage: 20MG/M2;QDX5;28DAYCYCLES
     Dates: start: 20130802
  2. ACYCLOVIR [Concomitant]
  3. CIPROFLOXACIN HCI [Concomitant]
  4. FLUCONAZOLE [Concomitant]
  5. CITALOPRAM HYDROBROMIDE [Concomitant]
  6. DULCOLAX [Concomitant]
  7. NEXIUM [Concomitant]
  8. ONDANSETRON HCI [Concomitant]
  9. OXCODONEK [Concomitant]
  10. OXYCONTIN [Concomitant]
  11. POLYETHYLENE GLYCOL [Concomitant]
  12. SENNA LAXATIVE [Concomitant]
  13. SUCRALFATE [Concomitant]

REACTIONS (5)
  - Visual impairment [None]
  - Vision blurred [None]
  - Carotid artery stenosis [None]
  - Retinal vein occlusion [None]
  - Colour blindness acquired [None]
